FAERS Safety Report 5204493-1 (Version None)
Quarter: 2007Q1

REPORT INFORMATION
  Report Type: 
  Country: None (occurrence: None)
  Receive Date: 20070110
  Receipt Date: 20060414
  Transmission Date: 20070707
  Serious: No
  Sender: FDA-Public Use
  Company Number: US-BRISTOL-MYERS SQUIBB COMPANY-13347216

PATIENT
  Age: 71 Year
  Sex: Female
  Weight: 79 kg

DRUGS (7)
  1. ABILIFY [Suspect]
     Indication: DEPRESSION
     Route: 048
  2. CYMBALTA [Concomitant]
  3. WELLBUTRIN [Concomitant]
  4. XANAX [Concomitant]
  5. SEROQUEL [Concomitant]
  6. VERAPAMIL HCL [Concomitant]
  7. BLOOD PRESSURE MEDICATION [Concomitant]
     Indication: BLOOD PRESSURE

REACTIONS (6)
  - BALANCE DISORDER [None]
  - BLOOD PRESSURE INCREASED [None]
  - DRUG INEFFECTIVE [None]
  - FALL [None]
  - MEMORY IMPAIRMENT [None]
  - MUSCULAR WEAKNESS [None]
